FAERS Safety Report 7767242-9 (Version None)
Quarter: 2011Q3

REPORT INFORMATION
  Report Type: 
  Country: None (occurrence: None)
  Receive Date: 20110922
  Receipt Date: 20100825
  Transmission Date: 20111222
  Serious: No
  Sender: FDA-Public Use
  Company Number: US-ASTRAZENECA-2007UW12294

PATIENT
  Age: 5057 Day
  Sex: Male
  Weight: 113.4 kg

DRUGS (31)
  1. DEPAKOTE [Concomitant]
     Indication: GRAND MAL CONVULSION
     Dosage: 1000 - 1500 MG DAILY
     Route: 048
     Dates: start: 20010416
  2. LUVOX [Concomitant]
     Dosage: 50 - 200 MG EVERYDAY
     Dates: start: 20011204
  3. ZYPREXA [Concomitant]
     Dates: start: 20001201, end: 20060101
  4. ALBUTEROL [Concomitant]
     Route: 045
     Dates: start: 20031125
  5. PROTONIX [Concomitant]
     Dates: start: 20031124
  6. AVANDIA [Concomitant]
     Dates: start: 20040516
  7. SEROQUEL [Suspect]
     Indication: DEPRESSION
     Dosage: 300 MG
     Route: 048
     Dates: start: 19970101, end: 20060901
  8. ZYPREXA [Concomitant]
     Dates: start: 20001201, end: 20060101
  9. LIPITOR [Concomitant]
     Dates: start: 20080607
  10. ROBITUSSIN DM [Concomitant]
     Dates: start: 20031125
  11. SEROQUEL [Suspect]
     Dosage: 25 - 650 MG DAILY
     Route: 048
     Dates: start: 20030726
  12. TEGRETOL [Concomitant]
     Dosage: 100 - 300 MG DAILY
     Route: 048
     Dates: start: 20080107
  13. BENADRYL [Concomitant]
     Dates: start: 20010910
  14. AUGMENTIN XR [Concomitant]
     Dates: start: 20030126
  15. ZYPREXA [Concomitant]
     Indication: BIPOLAR DISORDER
     Dosage: 10 MG
     Dates: start: 20061001
  16. ZYPREXA [Concomitant]
     Indication: DEPRESSION
     Dosage: 10 MG
     Dates: start: 20061001
  17. COGENTIN [Concomitant]
     Dates: start: 20010910
  18. SEROQUEL [Suspect]
     Dosage: 25 - 650 MG DAILY
     Route: 048
     Dates: start: 20030726
  19. TRAZODONE HYDROCHLORIDE [Concomitant]
     Dates: start: 20020322
  20. LEVOXYL [Concomitant]
     Dates: start: 20031125
  21. ANUSOL [Concomitant]
     Dates: start: 20040516
  22. INDOMETHACIN [Concomitant]
     Dates: start: 20031008
  23. SEROQUEL [Suspect]
     Indication: BIPOLAR DISORDER
     Dosage: 300 MG
     Route: 048
     Dates: start: 19970101, end: 20060901
  24. SEROQUEL [Suspect]
     Dosage: 25 - 650 MG DAILY
     Route: 048
     Dates: start: 20030726
  25. RISPERDAL [Concomitant]
     Dates: start: 20001201, end: 20060101
  26. ZOLOFT [Concomitant]
     Dates: start: 20020416
  27. PEPCID [Concomitant]
     Dates: start: 20031124
  28. STRATTERA [Concomitant]
     Dosage: 25 - 50 MG EVERY DAY
     Dates: start: 20040419
  29. SEROQUEL [Suspect]
     Indication: ATTENTION DEFICIT/HYPERACTIVITY DISORDER
     Dosage: 300 MG
     Route: 048
     Dates: start: 19970101, end: 20060901
  30. RISPERDAL [Concomitant]
     Dates: start: 20010416
  31. CLOMIPRAMINE HCL [Concomitant]
     Dates: start: 20020711

REACTIONS (5)
  - TYPE 2 DIABETES MELLITUS [None]
  - OBSESSIVE-COMPULSIVE DISORDER [None]
  - DIABETES MELLITUS INADEQUATE CONTROL [None]
  - IMMUNE SYSTEM DISORDER [None]
  - ABNORMAL BEHAVIOUR [None]
